FAERS Safety Report 11289721 (Version 2)
Quarter: 2015Q4

REPORT INFORMATION
  Report Type: Spontaneous
  Country: DE (occurrence: DE)
  Receive Date: 20150721
  Receipt Date: 20151007
  Transmission Date: 20160304
  Serious: Yes (Hospitalization)
  Sender: FDA-Public Use
  Company Number: DE-TEVA-578257GER

PATIENT
  Age: 57 Year
  Sex: Male
  Weight: 104 kg

DRUGS (3)
  1. CIPROFLOXACIN-RATIOPHARM 500MG FILMTABLETTEN [Suspect]
     Active Substance: CIPROFLOXACIN
     Indication: PYELONEPHRITIS
     Dosage: 1000 MILLIGRAM DAILY;
     Route: 048
     Dates: start: 20150703, end: 20150703
  2. CIPROFLOXACIN-RATIOPHARM 500MG FILMTABLETTEN [Suspect]
     Active Substance: CIPROFLOXACIN
     Indication: URINARY TRACT INFECTION
  3. NOVAMINSULFON [Concomitant]
     Active Substance: METAMIZOLE
     Indication: PAIN
     Dosage: UP TO 4X
     Route: 048
     Dates: start: 20150703, end: 20150703

REACTIONS (9)
  - Anxiety [Recovered/Resolved]
  - Psychogenic respiratory distress [Recovered/Resolved]
  - Tinnitus [Recovering/Resolving]
  - Ear discomfort [Recovering/Resolving]
  - Pain in extremity [Recovered/Resolved]
  - Headache [Recovering/Resolving]
  - Restlessness [Recovered/Resolved]
  - Arthralgia [Recovered/Resolved]
  - Personality change [Recovered/Resolved]

NARRATIVE: CASE EVENT DATE: 20150703
